FAERS Safety Report 5884420-4 (Version None)
Quarter: 2008Q3

REPORT INFORMATION
  Report Type: 
  Country: None (occurrence: None)
  Receive Date: 20080915
  Receipt Date: 20080903
  Transmission Date: 20090109
  Serious: Yes (Other)
  Sender: FDA-Public Use
  Company Number: JP-PFIZER INC-2008073876

PATIENT
  Age: 71 Year
  Sex: Male

DRUGS (5)
  1. UNASYN [Suspect]
     Indication: PNEUMONIA
     Dosage: DAILY DOSE:3GRAM
     Route: 042
     Dates: start: 20080526, end: 20080603
  2. FOSMICIN S [Suspect]
     Route: 042
     Dates: start: 20080521
  3. PL [Suspect]
     Route: 048
     Dates: start: 20080521, end: 20080523
  4. GLYCYRRHIZIN/GLYCINE/L-CYSTEINE HYDROCHLORIDE [Concomitant]
     Indication: ALCOHOLIC LIVER DISEASE
     Route: 042
     Dates: start: 20080527, end: 20080616
  5. OMEPRAZOLE [Concomitant]
     Indication: GASTRIC ULCER HAEMORRHAGE
     Route: 042
     Dates: start: 20080529, end: 20080604

REACTIONS (1)
  - ALVEOLITIS ALLERGIC [None]
